FAERS Safety Report 5440806-3 (Version None)
Quarter: 2007Q3

REPORT INFORMATION
  Report Type: 
  Country: None (occurrence: None)
  Receive Date: 20070831
  Receipt Date: 20070821
  Transmission Date: 20080115
  Serious: Yes (Other)
  Sender: FDA-Public Use
  Company Number: GB-BAUSCH-2007BL003004

PATIENT
  Age: 15 Year
  Sex: Female

DRUGS (2)
  1. TOBRAMYCIN [Suspect]
     Indication: CYSTIC FIBROSIS
     Route: 042
  2. COLISTIN SULFATE [Concomitant]
     Route: 049

REACTIONS (1)
  - RENAL FAILURE ACUTE [None]
